FAERS Safety Report 19768366 (Version 1)
Quarter: 2021Q3

REPORT INFORMATION
  Report Type: Report from Study
  Country: US (occurrence: US)
  Receive Date: 20210830
  Receipt Date: 20210830
  Transmission Date: 20211014
  Serious: Yes (Hospitalization, Other)
  Sender: FDA-Public Use
  Company Number: US-SERVIER-S21009479

PATIENT

DRUGS (7)
  1. TN UNSPECIFIED [Concomitant]
     Indication: ACUTE LYMPHOCYTIC LEUKAEMIA
     Dosage: 400 MG, QD
     Route: 048
     Dates: start: 20210408, end: 20210504
  2. TN UNSPECIFIED [Concomitant]
     Indication: ACUTE LYMPHOCYTIC LEUKAEMIA
     Dosage: 1.5 MG/M2, EVERY 1 WEEK
     Route: 042
     Dates: start: 20210411, end: 20210504
  3. TN UNSPECIFIED [Concomitant]
     Indication: ACUTE LYMPHOCYTIC LEUKAEMIA
     Dosage: 47 MG, QD
     Route: 048
     Dates: start: 20210411, end: 20210416
  4. PEGASPARGASE [Suspect]
     Active Substance: PEGASPARGASE
     Indication: ACUTE LYMPHOCYTIC LEUKAEMIA
     Dosage: 2500 MG/M2, QD
     Route: 048
     Dates: start: 20210414, end: 20210414
  5. TN UNSPECIFIED [Concomitant]
     Dosage: 400 MG, QD
     Route: 048
     Dates: start: 20210616, end: 20210707
  6. TN UNSPECIFIED [Concomitant]
     Indication: DEEP VEIN THROMBOSIS
     Dosage: 60 MG, BID
     Route: 042
     Dates: start: 20210310
  7. TN UNSPCIFIED [Concomitant]
     Indication: ANTIFUNGAL TREATMENT
     Dosage: 372 MG, BID
     Route: 048
     Dates: start: 20210324

REACTIONS (2)
  - Hypotension [Not Recovered/Not Resolved]
  - Pleural effusion [Not Recovered/Not Resolved]

NARRATIVE: CASE EVENT DATE: 20210731
